FAERS Safety Report 9417420 (Version 2)
Quarter: 2013Q3

REPORT INFORMATION
  Report Type: Report from Study
  Country: US (occurrence: US)
  Receive Date: 20130724
  Receipt Date: 20130827
  Transmission Date: 20140515
  Serious: Yes (Hospitalization, Other)
  Sender: FDA-Public Use
  Company Number: US-ABBOTT-13P-163-1121532-00

PATIENT
  Age: 50 Year
  Sex: Female
  Weight: 81.72 kg

DRUGS (7)
  1. HUMIRA [Suspect]
     Indication: RHEUMATOID ARTHRITIS
     Dosage: PFS
     Route: 058
     Dates: start: 2006, end: 2010
  2. HUMIRA [Suspect]
     Indication: RHEUMATOID ARTHRITIS
     Route: 058
     Dates: start: 2010, end: 201201
  3. HUMIRA [Suspect]
     Route: 058
     Dates: start: 201201, end: 201303
  4. ATENOLOL [Suspect]
     Indication: HYPERTENSION
     Dates: start: 201302, end: 20130711
  5. LIPITOR [Concomitant]
     Indication: LIPIDS INCREASED
     Dosage: DAILY
  6. PREDNISONE [Concomitant]
     Indication: RHEUMATOID ARTHRITIS
  7. METOPROLOL [Concomitant]
     Indication: RHEUMATOID ARTHRITIS
     Dosage: WEEKLY

REACTIONS (9)
  - Arterial occlusive disease [Recovered/Resolved]
  - Chest pain [Recovered/Resolved]
  - Coagulopathy [Recovering/Resolving]
  - Chest discomfort [Recovered/Resolved]
  - Blood pressure increased [Recovered/Resolved]
  - Asthenia [Recovered/Resolved]
  - Fatigue [Not Recovered/Not Resolved]
  - Somnolence [Not Recovered/Not Resolved]
  - Rheumatoid arthritis [Recovered/Resolved]
